FAERS Safety Report 9399784 (Version 1)
Quarter: 2013Q3

REPORT INFORMATION
  Report Type: Spontaneous
  Country: BR (occurrence: BR)
  Receive Date: 20130710
  Receipt Date: 20130710
  Transmission Date: 20140515
  Serious: Yes (Hospitalization)
  Sender: FDA-Public Use
  Company Number: DSJ-2013-15229

PATIENT
  Age: 57 Year
  Sex: Male
  Weight: 76 kg

DRUGS (3)
  1. BENICAR ANLO [Suspect]
     Indication: HYPERTENSION
     Route: 048
     Dates: start: 2010, end: 201209
  2. CHLORTHALIDONE (CHLORTALIDONE)(CHLORTALIDONE) [Concomitant]
  3. AMLODIPINE (AMLODIPINE)(AMLODIPINE) [Concomitant]

REACTIONS (3)
  - Blood pressure increased [None]
  - Obesity surgery [None]
  - Blood pressure increased [None]
